FAERS Safety Report 11139593 (Version 4)
Quarter: 2015Q3

REPORT INFORMATION
  Report Type: Spontaneous
  Country: US (occurrence: None)
  Receive Date: 20150522
  Receipt Date: 20150902
  Transmission Date: 20151125
  Serious: Yes (Other)
  Sender: FDA-Public Use
  Company Number: US-001945

PATIENT
  Sex: Female

DRUGS (2)
  1. THYROID THERAPY [Concomitant]
     Active Substance: UNSPECIFIED INGREDIENT
  2. PARATHYROID HORMONE (25 UG, 50 UG) [Suspect]
     Active Substance: PARATHYROID HORMONE
     Indication: HYPOPARATHYROIDISM
     Dosage: (25 ?G QD, DOSE REDUCED SUBCUTANEOUS)
     Route: 058
     Dates: start: 20150817

REACTIONS (14)
  - Electrolyte imbalance [None]
  - Hypotension [None]
  - Presyncope [None]
  - Blood calcium decreased [None]
  - Therapy cessation [None]
  - Muscle twitching [None]
  - Inappropriate schedule of drug administration [None]
  - Blood thyroid stimulating hormone increased [None]
  - Blood calcium increased [None]
  - Abdominal pain upper [None]
  - Dizziness [None]
  - Pollakiuria [None]
  - Hypokalaemia [None]
  - Therapy change [None]

NARRATIVE: CASE EVENT DATE: 2015
